FAERS Safety Report 16154938 (Version 2)
Quarter: 2019Q2

REPORT INFORMATION
  Report Type: Report from Study
  Country: US (occurrence: US)
  Receive Date: 20190403
  Receipt Date: 20190508
  Transmission Date: 20190711
  Serious: Yes (Hospitalization, Other)
  Sender: FDA-Public Use
  Company Number: US-SHIRE-US201910452

PATIENT
  Age: 25 Year
  Sex: Female

DRUGS (1)
  1. HUMAN NORMAL IMMUNOGLOBULIN; LIQUID 20 [Suspect]
     Active Substance: HUMAN IMMUNOGLOBULIN G
     Indication: PRIMARY IMMUNODEFICIENCY SYNDROME
     Dosage: UNK
     Route: 058
     Dates: end: 201807

REACTIONS (5)
  - Exposure during pregnancy [Unknown]
  - Cerebrovascular accident [Recovering/Resolving]
  - Depression suicidal [Unknown]
  - Abortion spontaneous [Unknown]
  - Infection [Unknown]

NARRATIVE: CASE EVENT DATE: 201805
